FAERS Safety Report 17395684 (Version 1)
Quarter: 2020Q1

REPORT INFORMATION
  Report Type: Spontaneous
  Country: US (occurrence: US)
  Receive Date: 20200210
  Receipt Date: 20200210
  Transmission Date: 20200409
  Serious: No
  Sender: FDA-Public Use
  Company Number: US-BRISTOL-MYERS SQUIBB COMPANY-BMS-2020-009944

PATIENT
  Age: 58 Year
  Sex: Female
  Weight: 58.97 kg

DRUGS (2)
  1. AMOXICILLIN. [Concomitant]
     Active Substance: AMOXICILLIN
     Indication: PRODUCT USED FOR UNKNOWN INDICATION
     Dosage: UNK
     Route: 065
  2. ELIQUIS [Suspect]
     Active Substance: APIXABAN
     Indication: THROMBOSIS PROPHYLAXIS
     Dosage: UNK, BID
     Route: 048
     Dates: start: 20200113

REACTIONS (8)
  - Chest pain [Unknown]
  - Paraesthesia [Unknown]
  - Hypoaesthesia [Unknown]
  - Dyspnoea [Unknown]
  - Pain in extremity [Unknown]
  - Headache [Unknown]
  - Back pain [Unknown]
  - Breast mass [Unknown]

NARRATIVE: CASE EVENT DATE: 20200113
